FAERS Safety Report 5035206-4 (Version None)
Quarter: 2006Q2

REPORT INFORMATION
  Report Type: 
  Country: None (occurrence: None)
  Receive Date: 20060622
  Receipt Date: 20060622
  Transmission Date: 20061013
  Serious: Yes (Life-Threatening, Hospitalization)
  Sender: FDA-Public Use
  Company Number: None

PATIENT
  Age: 38 Year
  Sex: Female
  Weight: 92 kg

DRUGS (2)
  1. NECON  1/35  WATSON PHARM [Suspect]
     Indication: CONTRACEPTION
     Dosage: NORETHINDRONE  1 MG / ETHINYL ESTRADIOL 35 MCG PO
     Route: 048
     Dates: start: 20060501, end: 20060618
  2. . [Concomitant]

REACTIONS (2)
  - INTRACRANIAL VENOUS SINUS THROMBOSIS [None]
  - SUBARACHNOID HAEMORRHAGE [None]
